FAERS Safety Report 8835964 (Version 1)
Quarter: 2012Q4

REPORT INFORMATION
  Report Type: 
  Country: BR (occurrence: BR)
  Receive Date: 20121011
  Receipt Date: 20121011
  Transmission Date: 20130627
  Serious: Yes (Other)
  Sender: FDA-Public Use
  Company Number: BR-PFIZER INC-2012247562

PATIENT
  Age: 80 Year
  Sex: Male
  Weight: 77 kg

DRUGS (4)
  1. VIAGRA [Suspect]
     Dosage: UNK
  2. ATENOLOL [Concomitant]
  3. MONOCORDIL [Concomitant]
  4. SUSTRATE [Concomitant]

REACTIONS (1)
  - Spinal disorder [Unknown]
